FAERS Safety Report 16859960 (Version 1)
Quarter: 2019Q4

REPORT INFORMATION
  Report Type: Spontaneous
  Country: US (occurrence: US)
  Receive Date: 20190927
  Receipt Date: 20190927
  Transmission Date: 20200122
  Serious: No
  Sender: FDA-Public Use
  Company Number: None

PATIENT
  Age: 29 Year
  Sex: Female
  Weight: 94.5 kg

DRUGS (5)
  1. MULTI VIT [Concomitant]
     Active Substance: VITAMINS
  2. NEXPLANON [Suspect]
     Active Substance: ETONOGESTREL
     Indication: CONTRACEPTION
     Dosage: ?          QUANTITY:1 IMPLANT;OTHER FREQUENCY:REMAINS IN BODY YR;OTHER ROUTE:IMPLANTED?
     Dates: start: 20190620, end: 20190920
  3. B12 COMPLEX [Concomitant]
  4. PROZAC [Concomitant]
     Active Substance: FLUOXETINE HYDROCHLORIDE
  5. BOTIN [Concomitant]

REACTIONS (4)
  - Hypertension [None]
  - Sleep terror [None]
  - Psychotic disorder [None]
  - Anxiety [None]

NARRATIVE: CASE EVENT DATE: 20190812
